FAERS Safety Report 4624908-7 (Version None)
Quarter: 2005Q2

REPORT INFORMATION
  Report Type: 
  Country: None (occurrence: None)
  Receive Date: 20050325
  Receipt Date: 20050111
  Transmission Date: 20051028
  Serious: No
  Sender: FDA-Public Use
  Company Number: USA050187940

PATIENT
  Age: 61 Year
  Sex: Female

DRUGS (4)
  1. FORTEO [Suspect]
     Indication: OSTEOPENIA
     Dosage: 20 UG/1 DAY
     Dates: start: 20040801
  2. PREMARIN [Concomitant]
  3. LIPITOR [Concomitant]
  4. .. [Suspect]

REACTIONS (6)
  - ABDOMINAL PAIN UPPER [None]
  - FLATULENCE [None]
  - ILL-DEFINED DISORDER [None]
  - IRRITABLE BOWEL SYNDROME [None]
  - PAIN IN EXTREMITY [None]
  - TOE DEFORMITY [None]
